FAERS Safety Report 8654526 (Version 8)
Quarter: 2012Q4

REPORT INFORMATION
  Report Type: 
  Country: US (occurrence: US)
  Receive Date: 20120709
  Receipt Date: 20120927
  Transmission Date: 20130627
  Serious: Yes (Other)
  Sender: FDA-Public Use
  Company Number: US-PFIZER INC-2012161059

PATIENT
  Age: 79 Year
  Sex: Female
  Weight: 65.76 kg

DRUGS (6)
  1. ATORVASTATIN CALCIUM [Suspect]
     Indication: BLOOD CHOLESTEROL INCREASED
     Dosage: 10 mg, 1x/day
     Route: 048
  2. PREVACID [Suspect]
     Indication: GASTRIC DISORDER
     Dosage: UNK
  3. PROTONIX [Suspect]
     Indication: GASTRIC DISORDER
     Dosage: 40 mg, 2x/day
     Route: 048
  4. NEXIUM [Suspect]
     Indication: GASTRIC DISORDER
     Dosage: UNK
  5. GLIMEPIRIDE [Suspect]
     Indication: DIABETES MELLITUS
     Dosage: 2 mg, daily
     Route: 048
     Dates: end: 201207
  6. VALSARTAN [Concomitant]
     Dosage: UNK

REACTIONS (17)
  - Gastric cancer [Unknown]
  - Myocardial infarction [Unknown]
  - Convulsion [Unknown]
  - Enteritis infectious [Recovered/Resolved]
  - Helicobacter infection [Recovered/Resolved]
  - Gastric ulcer [Recovered/Resolved]
  - Headache [Recovered/Resolved]
  - Abdominal discomfort [Recovered/Resolved]
  - Malaise [Recovered/Resolved]
  - Nausea [Recovered/Resolved]
  - Dyspepsia [Recovered/Resolved]
  - Infection [Unknown]
  - Memory impairment [Recovered/Resolved]
  - Influenza [Not Recovered/Not Resolved]
  - Malaise [Recovered/Resolved]
  - Cough [Not Recovered/Not Resolved]
  - Drug ineffective [Unknown]
